FAERS Safety Report 9332055 (Version 1)
Quarter: 2013Q2

REPORT INFORMATION
  Report Type: Report from Study
  Country: US (occurrence: US)
  Receive Date: 20130605
  Receipt Date: 20130605
  Transmission Date: 20140414
  Serious: Yes (Life-Threatening)
  Sender: FDA-Public Use
  Company Number: US-MERCK-1306USA001450

PATIENT
  Age: 58 Year
  Sex: Male
  Weight: 94 kg

DRUGS (8)
  1. BLINDED CARBOPLATIN [Suspect]
     Indication: NON-SMALL CELL LUNG CANCER
     Dosage: 800 MG, PO QD ON DAYS -2 TO +2
     Route: 048
     Dates: start: 20120820, end: 20120822
  2. BLINDED PACLITAXEL [Suspect]
     Indication: NON-SMALL CELL LUNG CANCER
     Dosage: 800 MG, PO QD ON DAYS -2 TO +2
     Route: 048
     Dates: start: 20120820, end: 20120822
  3. BLINDED PLACEBO [Suspect]
     Indication: NON-SMALL CELL LUNG CANCER
     Dosage: 800 MG, PO QD ON DAYS -2 TO +2
     Route: 048
     Dates: start: 20120820, end: 20120822
  4. BLINDED POST TRIAL THERAPY [Suspect]
     Indication: NON-SMALL CELL LUNG CANCER
     Dosage: 800 MG, PO QD ON DAYS -2 TO +2
     Route: 048
     Dates: start: 20120820, end: 20120822
  5. BLINDED PRE TRIAL THERAPY [Suspect]
     Indication: NON-SMALL CELL LUNG CANCER
     Dosage: 800 MG, PO QD ON DAYS -2 TO +2
     Route: 048
     Dates: start: 20120820, end: 20120822
  6. BLINDED VORINOSTAT [Suspect]
     Indication: NON-SMALL CELL LUNG CANCER
     Dosage: 800 MG, PO QD ON DAYS -2 TO +2
     Route: 048
     Dates: start: 20120820, end: 20120822
  7. PACLITAXEL [Suspect]
     Indication: NON-SMALL CELL LUNG CANCER
     Dosage: 200 MG/M2 IN OVER 3 HOURS ON DAY 0
     Route: 042
     Dates: start: 20120820
  8. CARBOPLATIN [Suspect]
     Indication: NON-SMALL CELL LUNG CANCER
     Dosage: AUC= 6 MG/ ML IV OVER 30 MINUTES ON DAY 0
     Route: 042
     Dates: start: 20120820

REACTIONS (1)
  - Neutrophil count decreased [Recovered/Resolved]
